FAERS Safety Report 15948697 (Version 3)
Quarter: 2020Q3

REPORT INFORMATION
  Report Type: Report from Study
  Country: None (occurrence: US)
  Receive Date: 20190211
  Receipt Date: 20200926
  Transmission Date: 20201102
  Serious: Yes (Other)
  Sender: FDA-Public Use
  Company Number: US-ABBVIE-19K-163-2656192-00

PATIENT
  Sex: Female

DRUGS (1)
  1. HUMIRA [Suspect]
     Active Substance: ADALIMUMAB
     Indication: HIDRADENITIS
     Dosage: CITRATE FREE
     Route: 058

REACTIONS (8)
  - Blindness [Not Recovered/Not Resolved]
  - Visual impairment [Unknown]
  - Urinary incontinence [Unknown]
  - Retinopathy [Unknown]
  - Influenza like illness [Unknown]
  - Eye swelling [Unknown]
  - Bladder malposition acquired [Unknown]
  - Dry mouth [Unknown]
